FAERS Safety Report 12205243 (Version 1)
Quarter: 2016Q1

REPORT INFORMATION
  Report Type: Spontaneous
  Country: None (occurrence: GB)
  Receive Date: 20160323
  Receipt Date: 20160323
  Transmission Date: 20160526
  Serious: Yes (Hospitalization)
  Sender: FDA-Public Use
  Company Number: GB-MEDAC PHARMA, INC.-1049516

PATIENT
  Sex: Female

DRUGS (3)
  1. EMLA [Concomitant]
     Active Substance: LIDOCAINE\PRILOCAINE
  2. METOJECT PEN [Suspect]
     Active Substance: METHOTREXATE
  3. ETHYLCHLORIDE [Concomitant]

REACTIONS (1)
  - Hospitalisation [Unknown]
